FAERS Safety Report 5944262-8 (Version None)
Quarter: 2008Q4

REPORT INFORMATION
  Report Type: 
  Country: None (occurrence: None)
  Receive Date: 20081104
  Receipt Date: 20081024
  Transmission Date: 20090506
  Serious: No
  Sender: FDA-Public Use
  Company Number: 2008-185883-NL

PATIENT
  Age: 14 Year
  Sex: Female

DRUGS (2)
  1. ETONOGESTREL (BATCH #: 268634/244534) [Suspect]
     Indication: CONTRACEPTION
     Dosage: DF, SUBDERMAL
     Route: 059
     Dates: start: 20080818, end: 20080912
  2. INSULIN GLARGINE [Suspect]

REACTIONS (6)
  - BLOOD GLUCOSE INCREASED [None]
  - DIZZINESS [None]
  - MALAISE [None]
  - MENSTRUATION IRREGULAR [None]
  - NAUSEA [None]
  - RASH [None]
